FAERS Safety Report 18121947 (Version 3)
Quarter: 2020Q3

REPORT INFORMATION
  Report Type: Spontaneous
  Country: GB (occurrence: GB)
  Receive Date: 20200806
  Receipt Date: 20200815
  Transmission Date: 20201103
  Serious: Yes (Hospitalization)
  Sender: FDA-Public Use
  Company Number: GB-CELLTRION INC.-2020GB024898

PATIENT

DRUGS (2)
  1. REMSIMA [Suspect]
     Active Substance: INFLIXIMAB
     Dosage: REMSIMA DOSE PRIOR TO OPERATION
  2. REMSIMA [Suspect]
     Active Substance: INFLIXIMAB
     Indication: HIDRADENITIS
     Dosage: REMSIMA 120MG PREFILLED PEN WEEKLY
     Route: 058
     Dates: start: 20200515

REACTIONS (2)
  - Off label use [Unknown]
  - Surgery [Recovered/Resolved]
